FAERS Safety Report 26073586 (Version 1)
Quarter: 2025Q4

REPORT INFORMATION
  Report Type: Report from Study
  Country: BR (occurrence: None)
  Receive Date: 20251121
  Receipt Date: 20251121
  Transmission Date: 20260118
  Serious: Yes (Life-Threatening, Hospitalization, Other)
  Sender: UCB
  Company Number: BR-UCBSA-2024058801

PATIENT
  Age: 2 Year
  Weight: 17.5 kg

DRUGS (10)
  1. DOXECITINE\DOXRIBTIMINE [Suspect]
     Active Substance: DOXECITINE\DOXRIBTIMINE
     Indication: Mitochondrial DNA depletion
     Dosage: UNK
  2. OMEPRAZOLE [Concomitant]
     Active Substance: OMEPRAZOLE
     Indication: Gastrooesophageal reflux disease
     Dosage: 10 MILLIGRAM, 2X/DAY (BID)
  3. PROPRANOLOL [Concomitant]
     Active Substance: PROPRANOLOL HYDROCHLORIDE
     Indication: Tachycardia
     Dosage: 18.75 MILLIGRAM 8/8 HR
  4. SPIRONOLACTONE [Concomitant]
     Active Substance: SPIRONOLACTONE
     Indication: Cardiac disorder
     Dosage: 25 MILLIGRAM 12/12 HR
  5. HYDROCHLOROTHIAZIDE [Concomitant]
     Active Substance: HYDROCHLOROTHIAZIDE
     Indication: Cardiac disorder
     Dosage: 16.4 MILLIGRAM 12/12 HR
  6. BECLOMETHASONE DIPROPIONATE [Concomitant]
     Active Substance: BECLOMETHASONE DIPROPIONATE
     Indication: Wheezing
     Dosage: 2 SPRAY 12/12 HR
  7. LEVETIRACETAM [Concomitant]
     Active Substance: LEVETIRACETAM
     Indication: Seizure
     Dosage: 200 MILLIGRAM 12/12 HRS
  8. SULFAMETHOXAZOLE\TRIMETHOPRIM [Concomitant]
     Active Substance: SULFAMETHOXAZOLE\TRIMETHOPRIM
     Indication: Urinary tract infection
     Dosage: 180 MILLIGRAM, ONCE DAILY (QD)
  9. ALBUTEROL [Concomitant]
     Active Substance: ALBUTEROL
     Indication: Wheezing
     Dosage: 3 SPRAYS 4/4 HRS
  10. ATROPINE [Concomitant]
     Active Substance: ATROPINE
     Indication: Lacrimation increased
     Dosage: 2 DROP, 3X/DAY (TID)

REACTIONS (12)
  - Gastroenteritis [Recovered/Resolved]
  - Urinary tract infection [Recovered/Resolved]
  - Hypotension [Recovered/Resolved]
  - Hypokalaemia [Recovered/Resolved]
  - Polyuria [Unknown]
  - Somnolence [Unknown]
  - Diarrhoea [Unknown]
  - Increased upper airway secretion [Unknown]
  - Pneumonia [Recovering/Resolving]
  - Precocious puberty [Not Recovered/Not Resolved]
  - Tracheostomy malfunction [Recovered/Resolved]
  - Viral infection [Recovering/Resolving]
